FAERS Safety Report 15493125 (Version 4)
Quarter: 2019Q1

REPORT INFORMATION
  Report Type: Spontaneous
  Country: US (occurrence: US)
  Receive Date: 20181012
  Receipt Date: 20190205
  Transmission Date: 20190417
  Serious: Yes (Other)
  Sender: FDA-Public Use
  Company Number: US-SA-2018SA280883

PATIENT
  Age: 68 Year
  Sex: Female
  Weight: 70 kg

DRUGS (67)
  1. TAXOTERE [Suspect]
     Active Substance: DOCETAXEL
     Indication: BREAST CANCER FEMALE
     Dosage: 150 MG, Q3W
     Route: 042
     Dates: start: 20030221, end: 20030221
  2. TAXOTERE [Suspect]
     Active Substance: DOCETAXEL
     Dosage: 135 MG, Q3W
     Route: 042
     Dates: start: 20030904, end: 20030904
  3. HERCEPTIN [Concomitant]
     Active Substance: TRASTUZUMAB
     Dosage: 390 MG, UNK
     Route: 065
     Dates: start: 20030221, end: 20030221
  4. HERCEPTIN [Concomitant]
     Active Substance: TRASTUZUMAB
     Dosage: 180 MG, UNK
     Route: 065
     Dates: start: 20030320, end: 20030320
  5. HERCEPTIN [Concomitant]
     Active Substance: TRASTUZUMAB
     Dosage: 180 MG, QW
     Route: 065
     Dates: start: 20030605, end: 20030605
  6. HERCEPTIN [Concomitant]
     Active Substance: TRASTUZUMAB
     Dosage: 180 MG, QW
     Route: 065
     Dates: start: 20030619, end: 20030619
  7. HERCEPTIN [Concomitant]
     Active Substance: TRASTUZUMAB
     Dosage: 180 MG, QW
     Route: 065
     Dates: start: 20030707, end: 20030707
  8. CARBOPLATIN. [Concomitant]
     Active Substance: CARBOPLATIN
     Dosage: 650 MG, UNK
     Route: 065
     Dates: start: 20030221, end: 20030221
  9. CARBOPLATIN. [Concomitant]
     Active Substance: CARBOPLATIN
     Dosage: 650 MG, UNK
     Route: 065
     Dates: start: 20030313, end: 20030313
  10. ANZEMET [Concomitant]
     Active Substance: DOLASETRON MESYLATE
     Dosage: 180 UNK, UNK
     Route: 065
     Dates: start: 20030221, end: 20030221
  11. ANZEMET [Concomitant]
     Active Substance: DOLASETRON MESYLATE
     Dosage: 180 UNK, UNK
     Dates: start: 20030515, end: 20030515
  12. DECADRON [Concomitant]
     Active Substance: DEXAMETHASONE
     Dosage: 10 UNK, UNK
     Dates: start: 20030623, end: 20030623
  13. NEULASTA [Concomitant]
     Active Substance: PEGFILGRASTIM
     Dosage: 6 MG, UNK
     Route: 065
     Dates: start: 20030808, end: 20030808
  14. CARBOPLATIN. [Concomitant]
     Active Substance: CARBOPLATIN
     Dosage: 650 MG, UNK
     Route: 065
     Dates: start: 20030423, end: 20030423
  15. CARBOPLATIN. [Concomitant]
     Active Substance: CARBOPLATIN
     Dosage: 640 MG, UNK
     Route: 065
     Dates: start: 20030904, end: 20030904
  16. DECADRON [Concomitant]
     Active Substance: DEXAMETHASONE
     Dosage: 10 UNK, UNK
     Route: 065
     Dates: start: 20030313, end: 20030313
  17. DECADRON [Concomitant]
     Active Substance: DEXAMETHASONE
     Dosage: 10 UNK, UNK
     Route: 065
     Dates: start: 20030904, end: 20030904
  18. NEULASTA [Concomitant]
     Active Substance: PEGFILGRASTIM
     Dosage: 6 MG, UNK
     Dates: start: 20030404, end: 20030404
  19. ARANESP [Concomitant]
     Active Substance: DARBEPOETIN ALFA
     Dosage: 200 UG, UNK
     Route: 065
     Dates: start: 20030505, end: 20030505
  20. ARANESP [Concomitant]
     Active Substance: DARBEPOETIN ALFA
     Dosage: 300 UG, UNK
     Route: 065
     Dates: start: 20030630, end: 20030630
  21. ARANESP [Concomitant]
     Active Substance: DARBEPOETIN ALFA
     Dosage: 300 UG, UNK
     Route: 065
     Dates: start: 20030714, end: 20030714
  22. HERCEPTIN [Concomitant]
     Active Substance: TRASTUZUMAB
     Dosage: 180 MG, UNK
     Route: 065
     Dates: start: 20030313, end: 20030313
  23. HERCEPTIN [Concomitant]
     Active Substance: TRASTUZUMAB
     Dosage: 180 MG, QW
     Route: 065
     Dates: start: 20030410, end: 20030410
  24. HERCEPTIN [Concomitant]
     Active Substance: TRASTUZUMAB
     Dosage: 180 MG, QW
     Route: 065
     Dates: start: 20030529, end: 20030529
  25. HERCEPTIN [Concomitant]
     Active Substance: TRASTUZUMAB
     Dosage: 150 MG, QW
     Route: 065
     Dates: start: 20030814, end: 20030814
  26. HERCEPTIN [Concomitant]
     Active Substance: TRASTUZUMAB
     Dosage: 150 MG, QW
     Route: 065
     Dates: start: 20030821, end: 20030821
  27. ANZEMET [Concomitant]
     Active Substance: DOLASETRON MESYLATE
     Dosage: 180 UNK, UNK
     Route: 065
     Dates: start: 20030313, end: 20030313
  28. DECADRON [Concomitant]
     Active Substance: DEXAMETHASONE
     Dosage: 10 UNK, UNK
     Route: 065
     Dates: start: 20030423, end: 20030423
  29. NEULASTA [Concomitant]
     Active Substance: PEGFILGRASTIM
     Dosage: 60 MG, UNK
     Route: 065
     Dates: start: 20030314, end: 20030314
  30. NEULASTA [Concomitant]
     Active Substance: PEGFILGRASTIM
     Dosage: 6 MG, UNK
     Route: 065
     Dates: start: 20030905, end: 20030905
  31. HERCEPTIN [Concomitant]
     Active Substance: TRASTUZUMAB
     Dosage: 180 MG, QW
     Route: 065
     Dates: start: 20030501, end: 20030501
  32. CARBOPLATIN. [Concomitant]
     Active Substance: CARBOPLATIN
     Dosage: 640 MG, UNK
     Route: 065
     Dates: start: 20030807, end: 20030807
  33. ANZEMET [Concomitant]
     Active Substance: DOLASETRON MESYLATE
     Dosage: 140 MG, UNK
     Route: 065
     Dates: start: 20030807, end: 20030807
  34. ANZEMET [Concomitant]
     Active Substance: DOLASETRON MESYLATE
     Dosage: 140 MG, UNK
     Dates: start: 20030904, end: 20030904
  35. DECADRON [Concomitant]
     Active Substance: DEXAMETHASONE
     Dosage: 10 UNK, UNK
     Route: 065
     Dates: start: 20030515, end: 20030515
  36. ARANESP [Concomitant]
     Active Substance: DARBEPOETIN ALFA
     Dosage: 300 UG, UNK
     Route: 065
     Dates: start: 20030619, end: 20030619
  37. ARANESP [Concomitant]
     Active Substance: DARBEPOETIN ALFA
     Dosage: 300 UG, UNK
     Route: 065
     Dates: start: 20030821, end: 20030821
  38. HERCEPTIN [Concomitant]
     Active Substance: TRASTUZUMAB
     Dosage: 180 MG, QW
     Route: 065
     Dates: start: 20030327, end: 20030327
  39. HERCEPTIN [Concomitant]
     Active Substance: TRASTUZUMAB
     Dosage: 180 MG, QW
     Route: 065
     Dates: start: 20030423, end: 20030423
  40. HERCEPTIN [Concomitant]
     Active Substance: TRASTUZUMAB
     Dosage: 180 MG, QW
     Route: 065
     Dates: start: 20060630, end: 20060630
  41. HERCEPTIN [Concomitant]
     Active Substance: TRASTUZUMAB
     Dosage: 150 MG, QW
     Route: 065
     Dates: start: 20030807, end: 20030807
  42. HERCEPTIN [Concomitant]
     Active Substance: TRASTUZUMAB
     Dosage: 150 MG, QW
     Route: 065
     Dates: start: 20030904, end: 20030904
  43. NEULASTA [Concomitant]
     Active Substance: PEGFILGRASTIM
     Dosage: 6 MG, UNK
     Route: 065
     Dates: start: 20030424, end: 20030424
  44. NEULASTA [Concomitant]
     Active Substance: PEGFILGRASTIM
     Dosage: 6 MG, UNK
     Route: 065
     Dates: start: 20030516, end: 20030516
  45. NEULASTA [Concomitant]
     Active Substance: PEGFILGRASTIM
     Dosage: 6 MG, UNK
     Route: 065
     Dates: start: 20030624, end: 20030624
  46. ARANESP [Concomitant]
     Active Substance: DARBEPOETIN ALFA
     Dosage: MORE THAN 300 UG
     Route: 065
     Dates: start: 20030605, end: 20030605
  47. ARANESP [Concomitant]
     Active Substance: DARBEPOETIN ALFA
     Dosage: 300 UG, UNK
     Route: 065
     Dates: start: 20030807, end: 20030807
  48. HERCEPTIN [Concomitant]
     Active Substance: TRASTUZUMAB
     Dosage: 180 MG, QW
     Route: 065
     Dates: start: 20030508, end: 20030508
  49. CARBOPLATIN. [Concomitant]
     Active Substance: CARBOPLATIN
     Dosage: 650 MG, UNK
     Route: 065
     Dates: start: 20030403, end: 20030403
  50. ANZEMET [Concomitant]
     Active Substance: DOLASETRON MESYLATE
     Dosage: 180 UNK, UNK
     Route: 065
     Dates: start: 20030403, end: 20030403
  51. DECADRON [Concomitant]
     Active Substance: DEXAMETHASONE
     Dosage: 10 UNK, UNK
     Route: 065
     Dates: start: 20030221, end: 20030221
  52. DECADRON [Concomitant]
     Active Substance: DEXAMETHASONE
     Dosage: 10 UNK, UNK
     Route: 065
     Dates: start: 20030807, end: 20030807
  53. NEUPOGEN [Concomitant]
     Active Substance: FILGRASTIM
     Dosage: 480 UNK, UNK
     Route: 065
     Dates: start: 20030228, end: 20030228
  54. HERCEPTIN [Concomitant]
     Active Substance: TRASTUZUMAB
     Dosage: 180 MG, UNK
     Route: 065
     Dates: start: 20030306, end: 20030306
  55. HERCEPTIN [Concomitant]
     Active Substance: TRASTUZUMAB
     Dosage: 180 MG, QW
     Route: 065
     Dates: start: 20030403, end: 20030403
  56. HERCEPTIN [Concomitant]
     Active Substance: TRASTUZUMAB
     Dosage: 180 MG, QW
     Route: 065
     Dates: start: 20030612, end: 20030612
  57. CARBOPLATIN. [Concomitant]
     Active Substance: CARBOPLATIN
     Dosage: 650 MG, UNK
     Route: 065
     Dates: start: 20030515, end: 20030515
  58. ANZEMET [Concomitant]
     Active Substance: DOLASETRON MESYLATE
     Dosage: 180 UNK, UNK
     Route: 065
     Dates: start: 20030423, end: 20030423
  59. NEUPOGEN [Concomitant]
     Active Substance: FILGRASTIM
     Dosage: 480 MG, UNK
     Route: 065
     Dates: start: 20030227, end: 20030227
  60. ARANESP [Concomitant]
     Active Substance: DARBEPOETIN ALFA
     Dosage: 200 UNK, UNK
     Route: 065
     Dates: start: 20030522, end: 20030522
  61. HERCEPTIN [Concomitant]
     Active Substance: TRASTUZUMAB
     Dosage: 180 MG, QW
     Route: 065
     Dates: start: 20030416, end: 20030416
  62. HERCEPTIN [Concomitant]
     Active Substance: TRASTUZUMAB
     Dosage: 180 MG, QW
     Route: 065
     Dates: start: 20030515, end: 20030515
  63. HERCEPTIN [Concomitant]
     Active Substance: TRASTUZUMAB
     Dosage: 180 MG, QW
     Route: 065
     Dates: start: 20030522, end: 20030522
  64. CARBOPLATIN. [Concomitant]
     Active Substance: CARBOPLATIN
     Dosage: 650 MG, UNK
     Dates: start: 20030623, end: 20030623
  65. ANZEMET [Concomitant]
     Active Substance: DOLASETRON MESYLATE
     Dosage: 180 UNK, UNK
     Route: 065
     Dates: start: 20030623, end: 20030623
  66. DECADRON [Concomitant]
     Active Substance: DEXAMETHASONE
     Dosage: 10 UNK, UNK
     Route: 065
     Dates: start: 20030403, end: 20030403
  67. AREDIA [Concomitant]
     Active Substance: PAMIDRONATE DISODIUM
     Dosage: 90 MG, UNK
     Route: 065
     Dates: start: 20030224, end: 20030224

REACTIONS (1)
  - Alopecia [Recovering/Resolving]

NARRATIVE: CASE EVENT DATE: 2003
